FAERS Safety Report 17856654 (Version 2)
Quarter: 2020Q2

REPORT INFORMATION
  Report Type: Spontaneous
  Country: SE (occurrence: SE)
  Receive Date: 20200603
  Receipt Date: 20200623
  Transmission Date: 20200714
  Serious: Yes (Death, Other)
  Sender: FDA-Public Use
  Company Number: SE-AMGEN-SWESP2020084142

PATIENT
  Age: 30 Year
  Sex: Male

DRUGS (3)
  1. EPOETIN ALFA [Suspect]
     Active Substance: ERYTHROPOIETIN
     Indication: IMMUNISATION
     Dosage: 40000 INTERNATIONAL UNIT, QOD (EVERY OTHER DAY FOR 12 DAYS)
     Route: 065
  2. NEUPOGEN [Suspect]
     Active Substance: FILGRASTIM
     Indication: IMMUNISATION
     Dosage: 10 MICROGRAM/KILOGRAM, QOD (EVERY OTHER DAY FOR 10 DAYS)
     Route: 065
     Dates: start: 201111
  3. EPOETIN BETA [Concomitant]
     Active Substance: ERYTHROPOIETIN
     Indication: IMMUNISATION
     Dosage: 40000 INTERNATIONAL UNIT

REACTIONS (10)
  - Axillary vein thrombosis [Unknown]
  - Device related thrombosis [Unknown]
  - Jugular vein thrombosis [Unknown]
  - Death [Fatal]
  - Subclavian vein thrombosis [Unknown]
  - Graft complication [Unknown]
  - Injury [Unknown]
  - Pulmonary artery thrombosis [Unknown]
  - Graft infection [Unknown]
  - Off label use [Unknown]

NARRATIVE: CASE EVENT DATE: 201111
